FAERS Safety Report 4718327-2 (Version None)
Quarter: 2005Q3

REPORT INFORMATION
  Report Type: 
  Country: None (occurrence: None)
  Receive Date: 20050718
  Receipt Date: 20050718
  Transmission Date: 20060218
  Serious: Yes (Life-Threatening)
  Sender: FDA-Public Use
  Company Number: None

PATIENT
  Sex: Female

DRUGS (1)
  1. BUSULFAN [Suspect]
     Indication: CHRONIC MYELOID LEUKAEMIA
     Dosage: 0.5 MG/KG 1 DOSE IV
     Route: 042
     Dates: start: 20050712, end: 20050712

REACTIONS (2)
  - DYSPNOEA [None]
  - FEBRILE NEUTROPENIA [None]
